FAERS Safety Report 19476809 (Version 1)
Quarter: 2021Q2

REPORT INFORMATION
  Report Type: Spontaneous
  Country: US (occurrence: US)
  Receive Date: 20210630
  Receipt Date: 20210630
  Transmission Date: 20210717
  Serious: No
  Sender: FDA-Public Use
  Company Number: US-PFIZER INC-2021348149

PATIENT
  Age: 77 Year
  Sex: Female
  Weight: 39.46 kg

DRUGS (1)
  1. BRAFTOVI [Suspect]
     Active Substance: ENCORAFENIB
     Indication: NEOPLASM MALIGNANT
     Dosage: 300 MG, DAILY (75 MG CAPSULES, 4 PILLS A DAY)
     Dates: start: 2021

REACTIONS (2)
  - Weight decreased [Unknown]
  - Constipation [Unknown]
